FAERS Safety Report 12774757 (Version 1)
Quarter: 2016Q3

REPORT INFORMATION
  Report Type: Report from Study
  Country: US (occurrence: US)
  Receive Date: 20160923
  Receipt Date: 20160923
  Transmission Date: 20161109
  Serious: Yes (Death, Other)
  Sender: FDA-Public Use
  Company Number: US-MYLANLABS-2016M1040524

PATIENT

DRUGS (1)
  1. AMIODARONE [Suspect]
     Active Substance: AMIODARONE
     Indication: HEART DISEASE CONGENITAL
     Route: 065

REACTIONS (3)
  - Mediastinal haemorrhage [Fatal]
  - Cardiac failure [Fatal]
  - Hyperthyroidism [Unknown]
